FAERS Safety Report 5580129-5 (Version None)
Quarter: 2007Q4

REPORT INFORMATION
  Report Type: 
  Country: None (occurrence: None)
  Receive Date: 20071227
  Receipt Date: 20071227
  Transmission Date: 20080405
  Serious: Yes (Other)
  Sender: FDA-Public Use
  Company Number: None

PATIENT
  Sex: Male
  Weight: 83.2 kg

DRUGS (16)
  1. VANCOMYCIN [Suspect]
     Indication: POST PROCEDURAL INFECTION
     Dosage: 1.2GM EVERY 24 HOURS IV BOLUS
     Route: 040
     Dates: start: 20071121, end: 20071219
  2. HUMAN INSULIN N [Concomitant]
  3. COLACE [Concomitant]
  4. NORVASC [Concomitant]
  5. NEURONTIN [Concomitant]
  6. TOPROL-XL [Concomitant]
  7. LOPID [Concomitant]
  8. CRESTOR [Concomitant]
  9. ASPIRIN [Concomitant]
  10. BACTRIM DS [Concomitant]
  11. IBUPROFEN [Concomitant]
  12. MILK OF MAGNESIA [Concomitant]
  13. DULCOLAX [Concomitant]
  14. TYLENOL [Concomitant]
  15. BENADRYL [Concomitant]
  16. ZANTAC [Concomitant]

REACTIONS (1)
  - RASH [None]
